FAERS Safety Report 4930041-7 (Version None)
Quarter: 2006Q1

REPORT INFORMATION
  Report Type: 
  Country: None (occurrence: None)
  Receive Date: 20060302
  Receipt Date: 20060105
  Transmission Date: 20060701
  Serious: Yes (Other)
  Sender: FDA-Public Use
  Company Number: PHRM2006FR00479

PATIENT
  Age: 79 Year
  Sex: Male

DRUGS (1)
  1. LAMISIL [Suspect]
     Indication: TRICHOPHYTON INFECTION
     Dosage: 250 MG, QD
     Route: 048
     Dates: start: 20051003, end: 20051008

REACTIONS (9)
  - ASPARTATE AMINOTRANSFERASE INCREASED [None]
  - BLOOD ALKALINE PHOSPHATASE INCREASED [None]
  - CHROMATURIA [None]
  - FAECES DISCOLOURED [None]
  - GAMMA-GLUTAMYLTRANSFERASE INCREASED [None]
  - HEPATIC CIRRHOSIS [None]
  - HEPATITIS [None]
  - HEPATOBILIARY CARCINOMA IN SITU [None]
  - TRANSAMINASES INCREASED [None]
